FAERS Safety Report 6554922-6 (Version None)
Quarter: 2010Q1

REPORT INFORMATION
  Report Type: 
  Country: None (occurrence: None)
  Receive Date: 20100126
  Receipt Date: 20100113
  Transmission Date: 20100710
  Serious: Yes (Hospitalization)
  Sender: FDA-Public Use
  Company Number: 003397

PATIENT
  Age: 69 Year
  Sex: Male
  Weight: 62.9 kg

DRUGS (2)
  1. PREDNISOLONE [Suspect]
     Dosage: (45 MG), (30 MG, DOWNTITRATED REGIMEN), (40 MG)
  2. CYCLOSPORINE [Suspect]
     Dosage: (ORAL)
     Route: 048

REACTIONS (5)
  - MICROSCOPIC POLYANGIITIS [None]
  - MONONEUROPATHY MULTIPLEX [None]
  - PYREXIA [None]
  - TRIGEMINAL NERVE DISORDER [None]
  - VITH NERVE PARALYSIS [None]
